FAERS Safety Report 17313100 (Version 1)
Quarter: 2020Q1

REPORT INFORMATION
  Report Type: Spontaneous
  Country: US (occurrence: US)
  Receive Date: 20200107
  Receipt Date: 20200107
  Transmission Date: 20200409
  Serious: Yes (Death, Hospitalization)
  Sender: FDA-Public Use
  Company Number: None

PATIENT
  Age: 52 Year
  Sex: Female
  Weight: 113.4 kg

DRUGS (5)
  1. VERIFLAXEN TRILIGY BREATHING MACHINE [Concomitant]
  2. CBD OIL [Concomitant]
     Active Substance: CANNABIDIOL\HERBALS
  3. GABAPENTIN. [Suspect]
     Active Substance: GABAPENTIN
     Indication: NEURALGIA
     Dosage: ?          QUANTITY:12 PILLS;?
     Route: 048
     Dates: start: 20080705, end: 20191205
  4. OXYCODONE [Suspect]
     Active Substance: OXYCODONE
  5. XARELTO [Concomitant]
     Active Substance: RIVAROXABAN

REACTIONS (3)
  - Dyspnoea [None]
  - Oxygen saturation decreased [None]
  - Productive cough [None]

NARRATIVE: CASE EVENT DATE: 20191205
